FAERS Safety Report 24534146 (Version 6)
Quarter: 2025Q2

REPORT INFORMATION
  Report Type: Report from Study
  Country: CA (occurrence: CA)
  Receive Date: 20241022
  Receipt Date: 20250417
  Transmission Date: 20250716
  Serious: Yes (Hospitalization, Other)
  Sender: TAKEDA
  Company Number: CA-TAKEDA-2024TUS003014

PATIENT
  Age: 66 Year
  Sex: Male

DRUGS (10)
  1. VEDOLIZUMAB [Suspect]
     Active Substance: VEDOLIZUMAB
     Indication: Crohn^s disease
  2. VEDOLIZUMAB [Suspect]
     Active Substance: VEDOLIZUMAB
  3. VEDOLIZUMAB [Suspect]
     Active Substance: VEDOLIZUMAB
  4. VEDOLIZUMAB [Suspect]
     Active Substance: VEDOLIZUMAB
     Dosage: 300 MILLIGRAM, Q4WEEKS
     Dates: start: 20241111
  5. VEDOLIZUMAB [Suspect]
     Active Substance: VEDOLIZUMAB
     Dosage: 300 MILLIGRAM, Q4WEEKS
  6. VEDOLIZUMAB [Suspect]
     Active Substance: VEDOLIZUMAB
     Dosage: 300 MILLIGRAM, Q4WEEKS
  7. AZATHIOPRINE [Concomitant]
     Active Substance: AZATHIOPRINE
  8. AMLODIPINE [Concomitant]
     Active Substance: AMLODIPINE BESYLATE
  9. CIPRO [Concomitant]
     Active Substance: CIPROFLOXACIN HYDROCHLORIDE
  10. Jaline [Concomitant]

REACTIONS (11)
  - Intestinal obstruction [Unknown]
  - Faeces soft [Recovered/Resolved]
  - Frequent bowel movements [Recovered/Resolved]
  - Gastrointestinal stoma output increased [Unknown]
  - Gastrooesophageal reflux disease [Unknown]
  - Diarrhoea [Not Recovered/Not Resolved]
  - Abdominal discomfort [Unknown]
  - Productive cough [Recovering/Resolving]
  - Off label use [Unknown]
  - Abdominal pain upper [Recovered/Resolved]
  - Abdominal pain [Recovered/Resolved]

NARRATIVE: CASE EVENT DATE: 20241012
